FAERS Safety Report 4767000-3 (Version None)
Quarter: 2005Q3

REPORT INFORMATION
  Report Type: 
  Country: None (occurrence: None)
  Receive Date: 20050908
  Receipt Date: 20050823
  Transmission Date: 20060218
  Serious: Yes (Hospitalization, Other)
  Sender: FDA-Public Use
  Company Number: 800242

PATIENT
  Age: 58 Year
  Sex: Male
  Weight: 79.5 kg

DRUGS (11)
  1. EXTRANEAL [Suspect]
     Indication: PERITONEAL DIALYSIS
     Dosage: 2000 ML;EVERY DAY;IP
     Dates: start: 20030902
  2. DIANEAL [Concomitant]
  3. ALLOPURINOL [Concomitant]
  4. ALTAT [Concomitant]
  5. CALCIUM CARBONATE [Concomitant]
  6. GUANABEZ ACETATE [Concomitant]
  7. FERROUS FUMARATE [Concomitant]
  8. CELTECT [Concomitant]
  9. ADALAT [Concomitant]
  10. VALSARTAN [Concomitant]
  11. MYSLEE [Concomitant]

REACTIONS (11)
  - BLOOD CREATININE INCREASED [None]
  - BLOOD PH INCREASED [None]
  - BLOOD PRESSURE INCREASED [None]
  - BLOOD UREA INCREASED [None]
  - CARDIAC FAILURE [None]
  - CARDIOMEGALY [None]
  - OEDEMA [None]
  - PLEURAL EFFUSION [None]
  - PO2 DECREASED [None]
  - RESPIRATORY DISTRESS [None]
  - WEIGHT INCREASED [None]
